FAERS Safety Report 15617911 (Version 3)
Quarter: 2019Q1

REPORT INFORMATION
  Report Type: Report from Study
  Country: DE (occurrence: DE)
  Receive Date: 20181114
  Receipt Date: 20190205
  Transmission Date: 20190417
  Serious: Yes (Hospitalization)
  Sender: FDA-Public Use
  Company Number: DE-TAKEDA-2018TUS031107

PATIENT
  Sex: Male

DRUGS (8)
  1. AMPICILLIN [Concomitant]
     Active Substance: AMPICILLIN
     Dosage: UNK
  2. STEROFUNDIN [Concomitant]
     Active Substance: CALCIUM CHLORIDE\MAGNESIUM CHLORIDE\POTASSIUM CHLORIDE\SODIUM ACETATE\SODIUM CHLORIDE
     Dosage: UNK
  3. VEDOLIZUMAB [Suspect]
     Active Substance: VEDOLIZUMAB
     Indication: PRODUCT USED FOR UNKNOWN INDICATION
     Dosage: UNK
     Route: 042
     Dates: start: 20161207, end: 20170526
  4. METAMIZOL                          /06276702/ [Concomitant]
     Active Substance: METAMIZOLE
     Dosage: UNK
  5. REMIFENTANIL [Concomitant]
     Active Substance: REMIFENTANIL
     Dosage: UNK
  6. ENOXAPARIN [Concomitant]
     Active Substance: ENOXAPARIN
     Dosage: UNK
  7. URSODEOXYCHOLIC ACID [Concomitant]
     Active Substance: URSODIOL
     Dosage: UNK
  8. GRANISETRON [Concomitant]
     Active Substance: GRANISETRON
     Dosage: UNK

REACTIONS (2)
  - Aspartate aminotransferase increased [Recovered/Resolved]
  - Proctitis [Recovered/Resolved with Sequelae]

NARRATIVE: CASE EVENT DATE: 20171126
